FAERS Safety Report 7190744-3 (Version None)
Quarter: 2010Q4

REPORT INFORMATION
  Report Type: 
  Country: None (occurrence: None)
  Receive Date: 20101223
  Receipt Date: 20101215
  Transmission Date: 20110411
  Serious: Yes (Hospitalization)
  Sender: FDA-Public Use
  Company Number: US-JNJCH-2010029162

PATIENT
  Age: 64 Year
  Sex: Male
  Weight: 76.2 kg

DRUGS (4)
  1. BENADRYL [Suspect]
     Indication: HYPERSENSITIVITY
     Dosage: TEXT:1 - ONCE DAILY
     Route: 048
  2. BENADRYL [Suspect]
     Dosage: TEXT:1 - ONCE DAILY
     Route: 048
  3. VERAPAMIL [Concomitant]
     Indication: HYPERTENSION
     Dosage: TEXT:UNKNOWN ONCE DAILY
     Route: 065
  4. AZOR [Concomitant]
     Indication: HYPERTENSION
     Dosage: TEXT:UNKNOWN ONCE DAILY
     Route: 065

REACTIONS (2)
  - COELIAC DISEASE [None]
  - CONDITION AGGRAVATED [None]
